FAERS Safety Report 9925014 (Version 2)
Quarter: 2014Q1

REPORT INFORMATION
  Report Type: Spontaneous
  Country: US (occurrence: US)
  Receive Date: 20140226
  Receipt Date: 20140317
  Transmission Date: 20141002
  Serious: Yes (Hospitalization)
  Sender: FDA-Public Use
  Company Number: US-BAYER-2014-028300

PATIENT
  Age: 25 Year
  Sex: Female

DRUGS (4)
  1. MIRENA [Suspect]
     Indication: CONTRACEPTION
     Dosage: 20 MCG/24HR, CONT
     Route: 015
     Dates: start: 20060911, end: 20111214
  2. DOXEPIN [Concomitant]
  3. HYDROXYZINE [Concomitant]
  4. IBUPROFEN [Concomitant]

REACTIONS (5)
  - Uterine perforation [None]
  - Device issue [None]
  - Injury [None]
  - Pain [None]
  - Emotional distress [None]
